FAERS Safety Report 5041439-3 (Version None)
Quarter: 2006Q2

REPORT INFORMATION
  Report Type: 
  Country: None (occurrence: None)
  Receive Date: 20060626
  Receipt Date: 20060530
  Transmission Date: 20061013
  Serious: Yes (Other)
  Sender: FDA-Public Use
  Company Number: CHPA2006US05465

PATIENT
  Age: 58 Year
  Sex: Male
  Weight: 86.2 kg

DRUGS (2)
  1. NICOTINE [Suspect]
     Indication: SMOKING CESSATION THERAPY
     Dosage: 21 MG, QD, TRANSDERMAL
     Route: 062
     Dates: start: 20060516, end: 20060530
  2. INSULIN [Concomitant]

REACTIONS (9)
  - BLOOD PRESSURE INCREASED [None]
  - CHEST DISCOMFORT [None]
  - COLD SWEAT [None]
  - DYSPNOEA [None]
  - HEADACHE [None]
  - MALAISE [None]
  - PALPITATIONS [None]
  - SALIVARY HYPERSECRETION [None]
  - WHEEZING [None]
